FAERS Safety Report 4763936-8 (Version None)
Quarter: 2005Q3

REPORT INFORMATION
  Report Type: 
  Country: None (occurrence: None)
  Receive Date: 20050906
  Receipt Date: 20050822
  Transmission Date: 20060218
  Serious: Yes (Death)
  Sender: FDA-Public Use
  Company Number: 430040N05USA

PATIENT
  Age: 58 Year
  Sex: Female
  Weight: 86.2 kg

DRUGS (13)
  1. NOVANTRONE [Suspect]
     Indication: MULTIPLE SCLEROSIS
     Dosage: 1 IN 3 MONTHS, INTRAVENOUS (NOT OTHERWISE SPECIFIED)
     Dates: start: 20020214, end: 20030529
  2. VALPROATE SODIUM [Concomitant]
  3. FENTANYL /00174601/ [Concomitant]
  4. TYLOX [Concomitant]
  5. TRILISATE [Concomitant]
  6. LIDOCAINE [Concomitant]
  7. LANSOPRAZOLE [Concomitant]
  8. ASPIRIN [Concomitant]
  9. ALENDRONATE SODIUM [Concomitant]
  10. DULOXETINE [Concomitant]
  11. CALCIUM D [Concomitant]
  12. BACTRIM [Concomitant]
  13. FOLIC ACID [Concomitant]

REACTIONS (1)
  - PULMONARY EMBOLISM [None]
